FAERS Safety Report 4524873-7 (Version None)
Quarter: 2004Q4

REPORT INFORMATION
  Report Type: 
  Country: None (occurrence: None)
  Receive Date: 20041213
  Receipt Date: 20041209
  Transmission Date: 20050328
  Serious: Yes (Other)
  Sender: FDA-Public Use
  Company Number: US-BRISTOL-MYERS SQUIBB COMPANY-12790408

PATIENT
  Age: 35 Year
  Sex: Female
  Weight: 76 kg

DRUGS (2)
  1. SERZONE [Suspect]
     Indication: DEPRESSION
     Dosage: ONE TIME DAILY
     Route: 048
     Dates: start: 19970101, end: 20020325
  2. PROZAC [Concomitant]

REACTIONS (3)
  - CHOLECYSTITIS CHRONIC [None]
  - HEPATIC ENZYME INCREASED [None]
  - HEPATIC NECROSIS [None]
